FAERS Safety Report 6840793-7 (Version None)
Quarter: 2010Q3

REPORT INFORMATION
  Report Type: 
  Country: None (occurrence: None)
  Receive Date: 20100714
  Receipt Date: 20060808
  Transmission Date: 20110219
  Serious: No
  Sender: FDA-Public Use
  Company Number: US-PFIZER INC-2006099729

PATIENT
  Sex: Male
  Weight: 96.16 kg

DRUGS (5)
  1. CHANTIX [Suspect]
     Indication: SMOKING CESSATION THERAPY
     Route: 065
     Dates: start: 20060801
  2. ATIVAN [Concomitant]
     Route: 065
  3. HALDOL [Concomitant]
     Route: 065
  4. DILANTIN [Concomitant]
     Route: 065
  5. TOPAMAX [Concomitant]
     Route: 065

REACTIONS (1)
  - TOBACCO USER [None]
